FAERS Safety Report 4619405-9 (Version None)
Quarter: 2005Q1

REPORT INFORMATION
  Report Type: 
  Country: None (occurrence: None)
  Receive Date: 20050325
  Receipt Date: 20050317
  Transmission Date: 20050727
  Serious: Yes (Life-Threatening, Hospitalization)
  Sender: FDA-Public Use
  Company Number: US-MERCK-0503USA03036

PATIENT
  Age: 60 Year
  Sex: Female

DRUGS (5)
  1. VIOXX [Suspect]
     Indication: ARTHRALGIA
     Route: 048
     Dates: start: 20010101, end: 20030101
  2. TENORMIN [Concomitant]
     Route: 065
  3. COUMADIN [Concomitant]
     Route: 065
  4. VICODIN [Concomitant]
     Route: 065
  5. ZYRTEC [Concomitant]
     Route: 065

REACTIONS (1)
  - INTRACRANIAL ANEURYSM [None]
